FAERS Safety Report 5684261-7 (Version None)
Quarter: 2008Q1

REPORT INFORMATION
  Report Type: 
  Country: None (occurrence: None)
  Receive Date: 20080328
  Receipt Date: 20071015
  Transmission Date: 20080703
  Serious: No
  Sender: FDA-Public Use
  Company Number: US-AMGEN-US248064

PATIENT
  Sex: Female
  Weight: 80.4 kg

DRUGS (7)
  1. NEULASTA [Suspect]
     Indication: CHEMOTHERAPY
     Route: 058
     Dates: start: 20071012
  2. ONDANSETRON [Concomitant]
     Route: 048
     Dates: start: 20071011, end: 20071013
  3. LORAZEPAM [Concomitant]
     Route: 048
     Dates: start: 20071011, end: 20071015
  4. DEXAMETHASONE TAB [Concomitant]
     Route: 048
     Dates: start: 20071010, end: 20071015
  5. CYTOXAN [Concomitant]
     Route: 042
     Dates: start: 20071011, end: 20071011
  6. DOXORUBICIN HYDROCHLORIDE [Concomitant]
     Route: 042
     Dates: start: 20071011, end: 20071011
  7. TAXOTERE [Concomitant]
     Route: 042
     Dates: start: 20071011, end: 20071011

REACTIONS (1)
  - PRURITUS [None]
